FAERS Safety Report 8067146-0 (Version None)
Quarter: 2012Q1

REPORT INFORMATION
  Report Type: 
  Country: None (occurrence: None)
  Receive Date: 20120124
  Receipt Date: 20120118
  Transmission Date: 20120608
  Serious: Yes (Other)
  Sender: FDA-Public Use
  Company Number: ES-ABBOTT-12P-144-0894998-00

PATIENT
  Sex: Female
  Weight: 90 kg

DRUGS (4)
  1. HUMIRA [Suspect]
     Route: 058
     Dates: start: 20101202, end: 20110801
  2. UNK TREATMENT [Concomitant]
     Indication: DEPRESSION
  3. HUMIRA [Suspect]
     Indication: PSORIASIS
     Dosage: INDUCTION DOSE
     Route: 058
     Dates: start: 20101125, end: 20101125
  4. UNK TREATMENT [Concomitant]
     Indication: INFLAMMATORY BOWEL DISEASE

REACTIONS (4)
  - PLEURAL EFFUSION [None]
  - ANTINUCLEAR ANTIBODY POSITIVE [None]
  - MYALGIA [None]
  - LUPUS-LIKE SYNDROME [None]
